FAERS Safety Report 8395387-1 (Version None)
Quarter: 2012Q2

REPORT INFORMATION
  Report Type: 
  Country: None (occurrence: None)
  Receive Date: 20120530
  Receipt Date: 20120503
  Transmission Date: 20120825
  Serious: Yes (Hospitalization, Other)
  Sender: FDA-Public Use
  Company Number: ES-AMGEN-ESPSP2012025300

PATIENT
  Age: 77 Year
  Sex: Female

DRUGS (7)
  1. TRAMADOL HCL [Concomitant]
     Indication: ANALGESIC THERAPY
     Dosage: UNK UNK, Q12H
     Route: 048
     Dates: start: 20120101
  2. PROLIA [Suspect]
     Dosage: UNK
     Dates: start: 20120301
  3. GALANTAMINE HYDROBROMIDE [Concomitant]
     Indication: PARKINSON'S DISEASE
     Dosage: UNK
     Route: 048
     Dates: start: 20110101
  4. SINEMET [Concomitant]
     Indication: PARKINSON'S DISEASE
     Dosage: UNK
     Route: 048
     Dates: start: 20110101
  5. PRAVASTATIN [Concomitant]
     Indication: HYPERLIPIDAEMIA
     Dosage: UNK UNK, QD
     Route: 048
  6. ASPIRIN [Concomitant]
     Indication: ANTIPLATELET THERAPY
     Dosage: UNK UNK, QD
     Route: 048
  7. PROLIA [Suspect]
     Indication: PRODUCT USED FOR UNKNOWN INDICATION
     Dosage: 60 MG, Q6MO
     Route: 058

REACTIONS (3)
  - FALL [None]
  - FEMUR FRACTURE [None]
  - BLOOD PARATHYROID HORMONE INCREASED [None]
